FAERS Safety Report 23407047 (Version 6)
Quarter: 2025Q4

REPORT INFORMATION
  Report Type: Spontaneous
  Country: US (occurrence: US)
  Receive Date: 20240116
  Receipt Date: 20251226
  Transmission Date: 20260117
  Serious: Yes (Other)
  Sender: LUNDBECK
  Company Number: US-LUNDBECK-DKLU3072523

PATIENT
  Age: 10 Year
  Sex: Male
  Weight: 43 kg

DRUGS (8)
  1. SABRIL [Suspect]
     Active Substance: VIGABATRIN
     Indication: Epilepsy
     Dosage: 1000 MILLIGRAM
     Route: 048
  2. SABRIL [Suspect]
     Active Substance: VIGABATRIN
     Indication: Simple partial seizures
  3. SABRIL [Suspect]
     Active Substance: VIGABATRIN
     Indication: Tuberous sclerosis complex
  4. AFINITOR [Concomitant]
     Active Substance: EVEROLIMUS
     Indication: Product used for unknown indication
  5. FAMOTIDINE [Concomitant]
     Active Substance: FAMOTIDINE
     Indication: Product used for unknown indication
  6. TAURINE [Concomitant]
     Active Substance: TAURINE
     Indication: Product used for unknown indication
  7. PYRIDOXINE [Concomitant]
     Active Substance: PYRIDOXINE
     Indication: Product used for unknown indication
     Dosage: 50 MILLIGRAM
  8. KEPPRA [Concomitant]
     Active Substance: LEVETIRACETAM
     Indication: Product used for unknown indication
     Dosage: 1000 MILLIGRAM

REACTIONS (3)
  - Drug withdrawal convulsions [Recovered/Resolved]
  - Coma [Recovered/Resolved]
  - Product dose omission issue [Unknown]
